FAERS Safety Report 9258310 (Version 1)
Quarter: 2013Q2

REPORT INFORMATION
  Report Type: Spontaneous
  Country: US (occurrence: US)
  Receive Date: 20130426
  Receipt Date: 20130426
  Transmission Date: 20140414
  Serious: No
  Sender: FDA-Public Use
  Company Number: US-009507513-1304USA014209

PATIENT
  Age: 50 Year
  Sex: Female

DRUGS (2)
  1. NASONEX [Suspect]
     Indication: SINUSITIS
     Dosage: ONE SPRAY IN EACH NOSTRIL, QD
     Route: 045
  2. TAMOXIFEN CITRATE [Concomitant]

REACTIONS (4)
  - Underdose [Unknown]
  - Product quality issue [Unknown]
  - Dyspnoea [Recovering/Resolving]
  - Drug dose omission [Unknown]
